FAERS Safety Report 8606729-3 (Version None)
Quarter: 2012Q3

REPORT INFORMATION
  Report Type: 
  Country: None (occurrence: None)
  Receive Date: 20120809
  Receipt Date: 20120809
  Transmission Date: 20120928
  Serious: Yes (Life-Threatening, Hospitalization, Disabling)
  Sender: FDA-Public Use
  Company Number: None

PATIENT
  Age: 56 Year
  Sex: Male
  Weight: 76.4 kg

DRUGS (1)
  1. PREDNISONE TAB [Suspect]
     Dosage: 25MG EVERY DAY PO
     Route: 048
     Dates: start: 20120103, end: 20120209

REACTIONS (2)
  - PANCREATITIS [None]
  - DIABETES MELLITUS [None]
